FAERS Safety Report 5485572-0 (Version None)
Quarter: 2007Q4

REPORT INFORMATION
  Report Type: 
  Country: None (occurrence: None)
  Receive Date: 20071011
  Receipt Date: 20071011
  Transmission Date: 20080405
  Serious: No
  Sender: FDA-Public Use
  Company Number: None

PATIENT
  Age: 66 Year
  Sex: Male

DRUGS (1)
  1. SULFAMETHOXAZOLE AND TRIMETHOPRIM [Suspect]
     Indication: SURGERY
     Dosage: 1TAB BID PO
     Route: 048
     Dates: start: 20070913, end: 20070914

REACTIONS (2)
  - ANGIOEDEMA [None]
  - CONDITION AGGRAVATED [None]
